FAERS Safety Report 19817279 (Version 3)
Quarter: 2021Q3

REPORT INFORMATION
  Report Type: Spontaneous
  Country: CN (occurrence: CN)
  Receive Date: 20210910
  Receipt Date: 20210923
  Transmission Date: 20211014
  Serious: No
  Sender: FDA-Public Use
  Company Number: CN-ABBVIE-21K-035-4071714-00

PATIENT
  Age: 27 Year
  Sex: Male

DRUGS (9)
  1. RALTEGRAVIR. [Suspect]
     Active Substance: RALTEGRAVIR
     Indication: HIV INFECTION
     Route: 065
     Dates: start: 201503
  2. ALUVIA [Suspect]
     Active Substance: LOPINAVIR\RITONAVIR
     Route: 048
     Dates: start: 201503
  3. AZIDOTHYMIDINE [Suspect]
     Active Substance: ZIDOVUDINE
     Indication: HIV INFECTION
     Route: 065
     Dates: start: 200808, end: 2013
  4. ALUVIA [Suspect]
     Active Substance: LOPINAVIR\RITONAVIR
     Indication: HIV INFECTION
     Route: 048
     Dates: start: 201308, end: 2015
  5. LAMIVUDINE. [Suspect]
     Active Substance: LAMIVUDINE
     Route: 065
     Dates: start: 201503
  6. AZIDOTHYMIDINE [Suspect]
     Active Substance: ZIDOVUDINE
     Route: 065
     Dates: start: 201503
  7. LAMIVUDINE. [Suspect]
     Active Substance: LAMIVUDINE
     Route: 065
     Dates: start: 201308, end: 2015
  8. LAMIVUDINE. [Suspect]
     Active Substance: LAMIVUDINE
     Indication: HIV INFECTION
     Route: 065
     Dates: start: 200808, end: 2013
  9. AZIDOTHYMIDINE [Suspect]
     Active Substance: ZIDOVUDINE
     Route: 065
     Dates: start: 201308, end: 2015

REACTIONS (2)
  - Viral load increased [Unknown]
  - Multiple-drug resistance [Unknown]

NARRATIVE: CASE EVENT DATE: 201308
